FAERS Safety Report 9535787 (Version 2)
Quarter: 2013Q4

REPORT INFORMATION
  Report Type: Spontaneous
  Country: CA (occurrence: CA)
  Receive Date: 20130919
  Receipt Date: 20131108
  Transmission Date: 20140711
  Serious: Yes (Other)
  Sender: FDA-Public Use
  Company Number: CA-ROCHE-1277215

PATIENT
  Age: 52 Year
  Sex: Female

DRUGS (7)
  1. XOLAIR [Suspect]
     Indication: ASTHMA
     Route: 058
     Dates: start: 20130712
  2. XOLAIR [Suspect]
     Route: 065
     Dates: start: 20131101
  3. SINGULAIR [Concomitant]
  4. SYMBICORT [Concomitant]
  5. PREDNISONE [Concomitant]
  6. ALVESCO [Concomitant]
  7. ADVAIR [Concomitant]

REACTIONS (9)
  - Asthma [Unknown]
  - Abdominal hernia [Unknown]
  - Vomiting [Recovered/Resolved]
  - Headache [Recovered/Resolved]
  - Nausea [Recovered/Resolved]
  - Dizziness [Recovered/Resolved]
  - Malaise [Recovered/Resolved]
  - Blood pressure diastolic increased [Unknown]
  - Heart rate increased [Unknown]
